FAERS Safety Report 6814685-3 (Version None)
Quarter: 2010Q2

REPORT INFORMATION
  Report Type: 
  Country: None (occurrence: None)
  Receive Date: 20100629
  Receipt Date: 20100618
  Transmission Date: 20101027
  Serious: Yes (Hospitalization, Other)
  Sender: FDA-Public Use
  Company Number: 230301K09CAN

PATIENT
  Age: 68 Year
  Sex: Female

DRUGS (1)
  1. REBIF [Suspect]
     Indication: MULTIPLE SCLEROSIS
     Dosage: 44 MCG, 3 IN 1 WK, SUBCUTANEOUS
     Route: 058
     Dates: start: 19970926

REACTIONS (6)
  - BREAST CANCER FEMALE [None]
  - CHRONIC LYMPHOCYTIC LEUKAEMIA [None]
  - INJECTION SITE PAIN [None]
  - NEUTROPHIL COUNT DECREASED [None]
  - OSTEOARTHRITIS [None]
  - PYREXIA [None]
